FAERS Safety Report 6092128-8 (Version None)
Quarter: 2009Q1

REPORT INFORMATION
  Report Type: 
  Country: None (occurrence: None)
  Receive Date: 20090223
  Receipt Date: 20090223
  Transmission Date: 20090719
  Serious: No
  Sender: FDA-Public Use
  Company Number: None

PATIENT
  Age: 7 Year
  Sex: Male

DRUGS (5)
  1. RISPERIDONE [Suspect]
     Indication: ANXIETY
     Dosage: 1/2 TAB, 0.125MG AT 6AM 1/2 TAB, 0.125MG AT 10AM 1/2 TAB, 0.125MG AT 2:30PM 1 TAB, 0.25MG AT 7PM PO
     Route: 048
     Dates: start: 20090102
  2. RISPERIDONE [Suspect]
     Indication: AUTISM
     Dosage: 1/2 TAB, 0.125MG AT 6AM 1/2 TAB, 0.125MG AT 10AM 1/2 TAB, 0.125MG AT 2:30PM 1 TAB, 0.25MG AT 7PM PO
     Route: 048
     Dates: start: 20090102
  3. RISPERIDONE [Suspect]
     Indication: BIPOLAR DISORDER
     Dosage: 1/2 TAB, 0.125MG AT 6AM 1/2 TAB, 0.125MG AT 10AM 1/2 TAB, 0.125MG AT 2:30PM 1 TAB, 0.25MG AT 7PM PO
     Route: 048
     Dates: start: 20090102
  4. RISPERIDONE [Suspect]
     Indication: MUSCLE RIGIDITY
     Dosage: 1/2 TAB, 0.125MG AT 6AM 1/2 TAB, 0.125MG AT 10AM 1/2 TAB, 0.125MG AT 2:30PM 1 TAB, 0.25MG AT 7PM PO
     Route: 048
     Dates: start: 20090102
  5. RISPERIDONE [Suspect]
     Indication: SENSORY DISTURBANCE
     Dosage: 1/2 TAB, 0.125MG AT 6AM 1/2 TAB, 0.125MG AT 10AM 1/2 TAB, 0.125MG AT 2:30PM 1 TAB, 0.25MG AT 7PM PO
     Route: 048
     Dates: start: 20090102

REACTIONS (3)
  - ABNORMAL BEHAVIOUR [None]
  - ANXIETY [None]
  - FEELING ABNORMAL [None]
